FAERS Safety Report 4378348-9 (Version None)
Quarter: 2004Q2

REPORT INFORMATION
  Report Type: 
  Country: None (occurrence: None)
  Receive Date: 20040609
  Receipt Date: 20040528
  Transmission Date: 20050107
  Serious: Yes (Hospitalization)
  Sender: FDA-Public Use
  Company Number: US-SHR-03-018720

PATIENT
  Age: 55 Year
  Sex: Male
  Weight: 92.1 kg

DRUGS (9)
  1. GM-CSF(GM-CSF (N/A)INJECTION [Suspect]
     Indication: AUTOLOGOUS BONE MARROW TRANSPLANTATION THERAPY
     Dosage: 250 UG DAILY (14 DY ON, 14 DY OFF), SUBCUTANEOUS
     Route: 058
     Dates: start: 20030701
  2. COUMADIN [Concomitant]
  3. ARAVA [Concomitant]
  4. ZANAFLEX [Concomitant]
  5. CELEBREX [Concomitant]
  6. ALEVE [Concomitant]
  7. TYLENOL [Concomitant]
  8. SEPTRA [Concomitant]
  9. LEUCOVORIN CALCIUM [Concomitant]

REACTIONS (5)
  - CEREBRAL INFARCTION [None]
  - CEREBROVASCULAR ACCIDENT [None]
  - FEELING ABNORMAL [None]
  - POST PROCEDURAL COMPLICATION [None]
  - TRANSIENT ISCHAEMIC ATTACK [None]
